FAERS Safety Report 12581016 (Version 2)
Quarter: 2016Q3

REPORT INFORMATION
  Report Type: Report from Study
  Country: GB (occurrence: GB)
  Receive Date: 20160721
  Receipt Date: 20160823
  Transmission Date: 20161109
  Serious: Yes (Other)
  Sender: FDA-Public Use
  Company Number: GB-JNJFOC-20160714618

PATIENT
  Age: 54 Year
  Sex: Female

DRUGS (4)
  1. PARIET [Concomitant]
     Active Substance: RABEPRAZOLE SODIUM
     Route: 065
     Dates: start: 20080830
  2. STELARA [Suspect]
     Active Substance: USTEKINUMAB
     Indication: PSORIASIS
     Route: 058
     Dates: start: 20121203
  3. COZAAR [Concomitant]
     Active Substance: LOSARTAN POTASSIUM
     Route: 065
     Dates: start: 20080908
  4. STELARA [Suspect]
     Active Substance: USTEKINUMAB
     Indication: PSORIASIS
     Route: 058
     Dates: start: 20110407, end: 20120909

REACTIONS (1)
  - Skin cancer [Unknown]

NARRATIVE: CASE EVENT DATE: 20140305
